FAERS Safety Report 5945598-7 (Version None)
Quarter: 2008Q4

REPORT INFORMATION
  Report Type: 
  Country: None (occurrence: None)
  Receive Date: 20081107
  Receipt Date: 20081027
  Transmission Date: 20090506
  Serious: Yes (Death, Other)
  Sender: FDA-Public Use
  Company Number: JP-PFIZER INC-2008091205

PATIENT
  Age: 64 Year
  Sex: Male

DRUGS (5)
  1. GABAPEN [Suspect]
     Indication: PROCEDURAL PAIN
     Dosage: TEXT:TDD:300 MG
     Dates: start: 20080616, end: 20080813
  2. MYSLEE [Suspect]
     Route: 048
     Dates: start: 20080616, end: 20080813
  3. LOXONIN [Concomitant]
     Dates: start: 20080616
  4. MUCOSTA [Concomitant]
     Dates: start: 20080616
  5. BERIZYM [Concomitant]
     Dates: start: 20080616

REACTIONS (6)
  - DIZZINESS [None]
  - HEADACHE [None]
  - MALIGNANT NEOPLASM PROGRESSION [None]
  - OESOPHAGEAL CARCINOMA [None]
  - SOMNOLENCE [None]
  - VISION BLURRED [None]
